FAERS Safety Report 9727589 (Version 1)
Quarter: 2013Q4

REPORT INFORMATION
  Report Type: Report from Study
  Country: BR (occurrence: BR)
  Receive Date: 20131203
  Receipt Date: 20131203
  Transmission Date: 20140711
  Serious: Yes (Hospitalization)
  Sender: FDA-Public Use
  Company Number: BR-US-EMD SERONO, INC.-7252640

PATIENT
  Age: 48 Year
  Sex: Female

DRUGS (1)
  1. REBIF [Suspect]
     Indication: MULTIPLE SCLEROSIS
     Dates: start: 20121212, end: 201311

REACTIONS (2)
  - Loss of consciousness [Unknown]
  - Multiple sclerosis relapse [Not Recovered/Not Resolved]
